FAERS Safety Report 9620249 (Version 1)
Quarter: 2013Q4

REPORT INFORMATION
  Report Type: Spontaneous
  Country: US (occurrence: US)
  Receive Date: 20131014
  Receipt Date: 20131014
  Transmission Date: 20140711
  Serious: No
  Sender: FDA-Public Use
  Company Number: US-ALLERGAN-1309617US

PATIENT
  Sex: Female

DRUGS (3)
  1. REFRESH OPTIVE [Suspect]
     Indication: PRODUCT USED FOR UNKNOWN INDICATION
     Route: 047
  2. BRIMONIDINE TARTRATE, 0.2% [Suspect]
     Indication: GLAUCOMA
     Route: 047
  3. TIMOLOL MALEATE [Concomitant]
     Indication: GLAUCOMA

REACTIONS (5)
  - Eye infection [Unknown]
  - Ocular hyperaemia [Unknown]
  - Eye pruritus [Unknown]
  - Vision blurred [Not Recovered/Not Resolved]
  - Eye discharge [Unknown]
